FAERS Safety Report 10897839 (Version 3)
Quarter: 2015Q2

REPORT INFORMATION
  Report Type: Spontaneous
  Country: US (occurrence: US)
  Receive Date: 20150309
  Receipt Date: 20150505
  Transmission Date: 20150821
  Serious: Yes (Death, Hospitalization, Other)
  Sender: FDA-Public Use
  Company Number: US-AMGEN-USASP2015020567

PATIENT
  Age: 79 Year
  Sex: Female
  Weight: 65.31 kg

DRUGS (1)
  1. PROLIA [Suspect]
     Active Substance: DENOSUMAB
     Indication: OSTEOPOROSIS POSTMENOPAUSAL
     Dosage: 60 MG/ML, ONE TIME DOSE
     Route: 030
     Dates: start: 20140415, end: 20140415

REACTIONS (22)
  - Wound infection staphylococcal [Unknown]
  - Renal tubular necrosis [Unknown]
  - Chronic kidney disease [Unknown]
  - Sepsis [Unknown]
  - Anaemia [Unknown]
  - Type 2 diabetes mellitus [Unknown]
  - Acinetobacter infection [Unknown]
  - Staphylococcal bacteraemia [Unknown]
  - Coagulopathy [Unknown]
  - Incorrect route of drug administration [Unknown]
  - General physical health deterioration [Unknown]
  - Disseminated intravascular coagulation [Unknown]
  - Blood creatinine increased [Unknown]
  - Death [Fatal]
  - Haemoglobin decreased [Unknown]
  - Hepatic cirrhosis [Unknown]
  - International normalised ratio increased [Unknown]
  - Hepatic failure [Unknown]
  - Multi-organ disorder [Unknown]
  - Acute kidney injury [Unknown]
  - Thrombocytopenia [Unknown]
  - Hypertension [Unknown]
